FAERS Safety Report 6653943-2 (Version None)
Quarter: 2010Q1

REPORT INFORMATION
  Report Type: 
  Country: None (occurrence: None)
  Receive Date: 20100326
  Receipt Date: 20100121
  Transmission Date: 20100710
  Serious: No
  Sender: FDA-Public Use
  Company Number: US-BAUSCH-2010BL000371

PATIENT
  Age: 59 Year
  Sex: Female

DRUGS (4)
  1. BESIVANCE [Suspect]
     Indication: EYE INFECTION
     Route: 047
     Dates: start: 20100120, end: 20100120
  2. BESIVANCE [Suspect]
     Route: 047
     Dates: start: 20100121, end: 20100121
  3. OXYCODONE [Concomitant]
  4. OPTIVE LUBRICANT EYE DROPS [Concomitant]

REACTIONS (1)
  - OCULAR HYPERAEMIA [None]
